FAERS Safety Report 8353805-9 (Version None)
Quarter: 2012Q2

REPORT INFORMATION
  Report Type: 
  Country: None (occurrence: None)
  Receive Date: 20120511
  Receipt Date: 20111202
  Transmission Date: 20120825
  Serious: No
  Sender: FDA-Public Use
  Company Number: US-GLAXOSMITHKLINE-A0956466A

PATIENT
  Age: 39 Year
  Sex: Female

DRUGS (6)
  1. DECADRON [Concomitant]
  2. FISH OIL [Concomitant]
  3. LASIX [Concomitant]
  4. AMBIEN CR [Concomitant]
  5. TYKERB [Suspect]
     Indication: BREAST CANCER
     Dosage: 1250MG PER DAY
     Route: 048
     Dates: start: 20111108, end: 20111201
  6. TYLENOL (CAPLET) [Concomitant]

REACTIONS (2)
  - FATIGUE [None]
  - RASH [None]
